FAERS Safety Report 7612876-5 (Version None)
Quarter: 2011Q3

REPORT INFORMATION
  Report Type: 
  Country: None (occurrence: None)
  Receive Date: 20110712
  Receipt Date: 20110415
  Transmission Date: 20111222
  Serious: Yes (Other)
  Sender: FDA-Public Use
  Company Number: 031371

PATIENT
  Sex: Female
  Weight: 59 kg

DRUGS (1)
  1. KEPPRA [Suspect]
     Indication: CONVULSION
     Dosage: 500 MG THREE PILLS AT ONCE, ORAL, 500 MG, TWO IN AM AND PM, ORAL
     Route: 048
     Dates: start: 20110328

REACTIONS (3)
  - INAPPROPRIATE SCHEDULE OF DRUG ADMINISTRATION [None]
  - PREGNANCY [None]
  - CONVULSION [None]
